FAERS Safety Report 7543100-X (Version None)
Quarter: 2011Q2

REPORT INFORMATION
  Report Type: 
  Country: None (occurrence: None)
  Receive Date: 20110613
  Receipt Date: 20110607
  Transmission Date: 20111010
  Serious: Yes (Other)
  Sender: FDA-Public Use
  Company Number: US-PFIZER INC-2011123955

PATIENT
  Sex: Male
  Weight: 114.29 kg

DRUGS (5)
  1. ZEMPLAR [Concomitant]
     Dosage: UNK
  2. LIPITOR [Concomitant]
     Dosage: UNK
  3. NORVASC [Concomitant]
     Dosage: UNK
  4. GLUCOTROL [Concomitant]
     Dosage: UNK
  5. NEURONTIN [Suspect]
     Indication: BACK PAIN
     Dosage: 700 MG TO 900 MG, 3X/DAY
     Route: 048
     Dates: start: 20110501

REACTIONS (1)
  - BLOOD CREATININE INCREASED [None]
